FAERS Safety Report 16437776 (Version 1)
Quarter: 2019Q2

REPORT INFORMATION
  Report Type: Report from Study
  Country: BR (occurrence: BR)
  Receive Date: 20190616
  Receipt Date: 20190616
  Transmission Date: 20190711
  Serious: Yes (Hospitalization)
  Sender: FDA-Public Use
  Company Number: PHHY2019BR134520

PATIENT
  Age: 60 Year
  Sex: Male

DRUGS (4)
  1. VELIJA [Concomitant]
     Active Substance: DULOXETINE HYDROCHLORIDE
     Indication: PAIN
  2. SANY D [Concomitant]
     Indication: VITAMIN D ABNORMAL
     Dosage: 5000 OT, UNK
     Route: 065
  3. GALVUS MET [Suspect]
     Active Substance: METFORMIN HYDROCHLORIDE\VILDAGLIPTIN
     Indication: TYPE 1 DIABETES MELLITUS
     Dosage: (METFORMIN 1000MG, VILDAGLIPTIN 50MG) (CONSTANT)
     Route: 065
     Dates: start: 2015
  4. VELIJA [Concomitant]
     Active Substance: DULOXETINE HYDROCHLORIDE
     Indication: DEPRESSION
     Dosage: UNK
     Route: 065

REACTIONS (7)
  - Thrombosis [Unknown]
  - Balance disorder [Unknown]
  - Osteoporosis [Unknown]
  - Fall [Unknown]
  - Upper limb fracture [Unknown]
  - Dehydration [Unknown]
  - Peripheral swelling [Unknown]

NARRATIVE: CASE EVENT DATE: 201807
